FAERS Safety Report 7002370-7 (Version None)
Quarter: 2010Q3

REPORT INFORMATION
  Report Type: 
  Country: None (occurrence: None)
  Receive Date: 20100920
  Receipt Date: 20071211
  Transmission Date: 20110219
  Serious: Yes (Other)
  Sender: FDA-Public Use
  Company Number: US-ASTRAZENECA-2006UW21873

PATIENT
  Age: 41 Year
  Sex: Female
  Weight: 110.2 kg

DRUGS (9)
  1. SEROQUEL [Suspect]
     Indication: BIPOLAR DISORDER
     Route: 048
     Dates: start: 19980101, end: 20010101
  2. SEROQUEL [Suspect]
     Indication: DEPRESSION
     Route: 048
     Dates: start: 19980101, end: 20010101
  3. SEROQUEL [Suspect]
     Route: 048
     Dates: start: 20030701, end: 20050101
  4. SEROQUEL [Suspect]
     Route: 048
     Dates: start: 20030701, end: 20050101
  5. SEROQUEL [Suspect]
     Dosage: START DATE UNKNOWN UNTIL 2003, DOSE UNKNOWN
     Route: 048
     Dates: end: 20030101
  6. SEROQUEL [Suspect]
     Dosage: START DATE UNKNOWN UNTIL 2003, DOSE UNKNOWN
     Route: 048
     Dates: end: 20030101
  7. SEROQUEL [Suspect]
     Dosage: 50 - 100 MG
     Route: 048
     Dates: start: 20041209, end: 20050203
  8. SEROQUEL [Suspect]
     Dosage: 50 - 100 MG
     Route: 048
     Dates: start: 20041209, end: 20050203
  9. BUPROPION HCL [Concomitant]
     Dates: start: 20050801

REACTIONS (7)
  - BLOOD CHOLESTEROL INCREASED [None]
  - DIABETES MELLITUS [None]
  - DIABETIC COMA [None]
  - KETOACIDOSIS [None]
  - OBESITY [None]
  - PANCREATITIS [None]
  - TYPE 2 DIABETES MELLITUS [None]
